FAERS Safety Report 24144686 (Version 1)
Quarter: 2024Q3

REPORT INFORMATION
  Report Type: Spontaneous
  Country: NL (occurrence: NL)
  Receive Date: 20240728
  Receipt Date: 20240728
  Transmission Date: 20241016
  Serious: Yes (Death)
  Sender: JOHNSON AND JOHNSON
  Company Number: None

PATIENT
  Age: 91 Year
  Sex: Male

DRUGS (7)
  1. ZYTIGA [Suspect]
     Active Substance: ABIRATERONE ACETATE
     Indication: Prostate cancer
     Dosage: 1DD2T
     Route: 065
     Dates: start: 20240501
  2. CARBASPIRIN CALCIUM [Concomitant]
     Active Substance: CARBASPIRIN CALCIUM
     Indication: Product used for unknown indication
     Dosage: 80 MG
     Route: 065
  3. VOLCOLON [Concomitant]
     Indication: Product used for unknown indication
     Dosage: ZAKJE (GRANULAAT), 3,6 G (GRAM)
     Route: 065
  4. OMEPRAZOLE MAGNESIUM [Concomitant]
     Active Substance: OMEPRAZOLE MAGNESIUM
     Indication: Product used for unknown indication
     Dosage: GASTRO-RESISTANT TABLET, 20 MG (MILLIGRAM)
     Route: 065
  5. PREDNISOLONE [Concomitant]
     Active Substance: PREDNISOLONE
     Indication: Product used for unknown indication
     Dosage: CAPSULE, 10 MG (MILLIGRAM)
     Route: 065
  6. BISOPROLOL [Concomitant]
     Active Substance: BISOPROLOL\BISOPROLOL FUMARATE
     Indication: Product used for unknown indication
     Dosage: TABLET, 2,5 MG (MILLIGRAM)
     Route: 065
  7. SIMVASTATIN [Concomitant]
     Active Substance: SIMVASTATIN
     Indication: Product used for unknown indication
     Dosage: FILM-COATED TABLET, 40 MG (MILLIGRAM)
     Route: 065

REACTIONS (1)
  - Sepsis [Fatal]
